FAERS Safety Report 4709898-0 (Version None)
Quarter: 2005Q3

REPORT INFORMATION
  Report Type: 
  Country: None (occurrence: None)
  Receive Date: 20050708
  Receipt Date: 20050701
  Transmission Date: 20060218
  Serious: Yes (Hospitalization)
  Sender: FDA-Public Use
  Company Number: JP-BRISTOL-MYERS SQUIBB COMPANY-13023940

PATIENT
  Age: 73 Year
  Sex: Male

DRUGS (4)
  1. TAXOL [Suspect]
     Indication: PROSTATE CANCER
     Route: 042
     Dates: start: 20050526, end: 20050526
  2. PARAPLATIN [Suspect]
     Indication: PROSTATE CANCER
     Route: 042
     Dates: start: 20050526, end: 20050526
  3. ESTRACYT [Suspect]
     Indication: PROSTATE CANCER
     Route: 048
     Dates: start: 20020307, end: 20050526
  4. DECADRON [Suspect]
     Indication: PROSTATE CANCER
     Route: 048
     Dates: start: 20021114, end: 20050526

REACTIONS (2)
  - DEEP VEIN THROMBOSIS [None]
  - PULMONARY EMBOLISM [None]
